FAERS Safety Report 7580034-9 (Version None)
Quarter: 2011Q2

REPORT INFORMATION
  Report Type: 
  Country: None (occurrence: None)
  Receive Date: 20110629
  Receipt Date: 20110620
  Transmission Date: 20111010
  Serious: Yes (Other)
  Sender: FDA-Public Use
  Company Number: GB-JNJFOC-20110610008

PATIENT
  Sex: Male

DRUGS (2)
  1. PREZISTA [Suspect]
     Indication: HIV INFECTION
     Dosage: 100/800
     Route: 065
     Dates: start: 20110617
  2. RITONAVIR [Suspect]
     Indication: HIV INFECTION
     Route: 065
     Dates: start: 20110617

REACTIONS (1)
  - SUPRAVENTRICULAR TACHYCARDIA [None]
